FAERS Safety Report 4543249-X (Version None)
Quarter: 2004Q4

REPORT INFORMATION
  Report Type: 
  Country: None (occurrence: None)
  Receive Date: 20041229
  Receipt Date: 20041116
  Transmission Date: 20050328
  Serious: Yes (Disabling, Other)
  Sender: FDA-Public Use
  Company Number: 2004233918FR

PATIENT
  Age: 52 Year
  Sex: Female

DRUGS (4)
  1. XALATAN [Suspect]
     Indication: OCULAR HYPERTENSION
     Dosage: 1 DROP EVERY DAY, OPTHALMIC
     Route: 047
     Dates: start: 20020618, end: 20020901
  2. XALATAN [Suspect]
     Indication: OCULAR HYPERTENSION
     Dosage: 1 DROP EVERY DAY, OPTHALMIC
     Route: 047
     Dates: start: 20040101
  3. BIMATOPROST (BIMATOPROST) [Suspect]
     Indication: ILL-DEFINED DISORDER
     Dosage: OPHTHALMIC
     Route: 047
     Dates: start: 20020901, end: 20040101
  4. TIMOLOL MALEATE [Concomitant]

REACTIONS (1)
  - IRITIC MELANOMA [None]
